FAERS Safety Report 5734721-5 (Version None)
Quarter: 2008Q2

REPORT INFORMATION
  Report Type: 
  Country: None (occurrence: None)
  Receive Date: 20080508
  Receipt Date: 20080508
  Transmission Date: 20081010
  Serious: No
  Sender: FDA-Public Use
  Company Number: TPA2008A00570

PATIENT

DRUGS (1)
  1. ACTOPLUS MET [Suspect]
     Dosage: 0.5 TAB., 4 IN 1 D, PER ORAL
     Route: 048

REACTIONS (1)
  - NO ADVERSE EVENT [None]
